FAERS Safety Report 7623869-6 (Version None)
Quarter: 2011Q3

REPORT INFORMATION
  Report Type: 
  Country: None (occurrence: None)
  Receive Date: 20110719
  Receipt Date: 20110719
  Transmission Date: 20111222
  Serious: Yes (Other)
  Sender: FDA-Public Use
  Company Number: None

PATIENT
  Sex: Female
  Weight: 44.9061 kg

DRUGS (1)
  1. WARFARIN SODIUM [Suspect]
     Indication: DEEP VEIN THROMBOSIS
     Dosage: 5MG ONE DAILY P.O.
     Route: 048
     Dates: start: 20030301, end: 20030601

REACTIONS (3)
  - INCREASED TENDENCY TO BRUISE [None]
  - PRODUCT QUALITY ISSUE [None]
  - VITREOUS HAEMORRHAGE [None]
